FAERS Safety Report 6608052-5 (Version None)
Quarter: 2010Q1

REPORT INFORMATION
  Report Type: 
  Country: None (occurrence: None)
  Receive Date: 20100301
  Receipt Date: 20100222
  Transmission Date: 20100710
  Serious: Yes (Death)
  Sender: FDA-Public Use
  Company Number: CHPA2010US03749

PATIENT
  Age: 59 Year
  Sex: Male

DRUGS (7)
  1. ACETYLSALICYLIC ACID SRT [Suspect]
  2. DILTIAZEM HCL [Suspect]
  3. ALPRAZOLAM [Suspect]
  4. ESOMEPRAZOLE [Suspect]
  5. SOTALOL [Suspect]
  6. HYDROMORPHONE [Suspect]
  7. MORPHINE [Suspect]

REACTIONS (1)
  - COMPLETED SUICIDE [None]
